FAERS Safety Report 4815389-9 (Version None)
Quarter: 2005Q4

REPORT INFORMATION
  Report Type: 
  Country: None (occurrence: None)
  Receive Date: 20051027
  Receipt Date: 20051021
  Transmission Date: 20060501
  Serious: Yes (Other)
  Sender: FDA-Public Use
  Company Number: 12197

PATIENT
  Age: 74 Year
  Sex: Female

DRUGS (4)
  1. AREDIA [Suspect]
  2. DOXORUBICIN [Concomitant]
  3. VINCRISTINE [Concomitant]
  4. DEXAMETHASONE [Concomitant]

REACTIONS (2)
  - INFECTION [None]
  - OSTEONECROSIS [None]
